FAERS Safety Report 19029447 (Version 2)
Quarter: 2021Q1

REPORT INFORMATION
  Report Type: Spontaneous
  Country: US (occurrence: US)
  Receive Date: 20210318
  Receipt Date: 20210331
  Transmission Date: 20210420
  Serious: Yes (Other)
  Sender: FDA-Public Use
  Company Number: US-ASTRAZENECA-2021A143728

PATIENT
  Sex: Male

DRUGS (2)
  1. INSULIN [Concomitant]
     Active Substance: INSULIN NOS
  2. BYDUREON BCISE [Suspect]
     Active Substance: EXENATIDE
     Dosage: 2.0MG UNKNOWN
     Route: 065

REACTIONS (9)
  - Weight increased [Unknown]
  - Wrong technique in device usage process [Unknown]
  - Brain injury [Unknown]
  - Irritability [Unknown]
  - Incorrect dose administered by device [Unknown]
  - Scar [Unknown]
  - Device leakage [Unknown]
  - Injection site pain [Unknown]
  - Intentional device misuse [Unknown]
